FAERS Safety Report 7542337-3 (Version None)
Quarter: 2011Q2

REPORT INFORMATION
  Report Type: 
  Country: None (occurrence: None)
  Receive Date: 20110524
  Receipt Date: 20110321
  Transmission Date: 20111010
  Serious: No
  Sender: FDA-Public Use
  Company Number: 028908

PATIENT
  Sex: Female

DRUGS (4)
  1. FLUTICASONE PROPIONATE W/SALMETEROL [Concomitant]
  2. CIMZIA [Suspect]
     Indication: CROHN'S DISEASE
     Dosage: SUBCUTANEOUS 400 MG 1X28 DAYS
     Route: 058
     Dates: start: 20091201
  3. CIMZIA [Suspect]
     Indication: CROHN'S DISEASE
     Dosage: SUBCUTANEOUS 400 MG 1X28 DAYS
     Route: 058
     Dates: start: 20100101
  4. PROVENTIL /00139501/ [Concomitant]

REACTIONS (2)
  - PRURITUS [None]
  - RASH MACULAR [None]
